FAERS Safety Report 5712565-8 (Version None)
Quarter: 2008Q2

REPORT INFORMATION
  Report Type: 
  Country: None (occurrence: None)
  Receive Date: 20080422
  Receipt Date: 20080409
  Transmission Date: 20081010
  Serious: Yes (Hospitalization, Other)
  Sender: FDA-Public Use
  Company Number: US-AMGEN-QUU270745

PATIENT
  Sex: Female
  Weight: 51.3 kg

DRUGS (9)
  1. ENBREL [Suspect]
     Indication: PSORIATIC ARTHROPATHY
     Route: 058
     Dates: start: 20041208
  2. ENBREL [Suspect]
     Indication: PSORIASIS
  3. HYDROCHLOROTHIAZIDE [Suspect]
     Route: 048
  4. LUNESTA [Concomitant]
     Route: 048
  5. METHOTREXATE [Concomitant]
     Route: 048
  6. PREDNISONE [Concomitant]
     Route: 048
  7. CLONAZEPAM [Concomitant]
     Route: 048
  8. SPIRIVA [Concomitant]
     Route: 055
  9. DIOVAN [Concomitant]
     Route: 048

REACTIONS (20)
  - ANXIETY [None]
  - AORTIC STENOSIS [None]
  - BALANCE DISORDER [None]
  - CARDIAC MURMUR [None]
  - CHEST PAIN [None]
  - COUGH [None]
  - DEAFNESS [None]
  - DYSPHONIA [None]
  - DYSPNOEA EXERTIONAL [None]
  - FATIGUE [None]
  - HAND DEFORMITY [None]
  - HYPOAESTHESIA [None]
  - MUSCULAR WEAKNESS [None]
  - OEDEMA PERIPHERAL [None]
  - PAIN IN EXTREMITY [None]
  - PALPITATIONS [None]
  - PARAESTHESIA [None]
  - POLLAKIURIA [None]
  - PRESYNCOPE [None]
  - WEIGHT DECREASED [None]
